FAERS Safety Report 6829339-7 (Version None)
Quarter: 2010Q3

REPORT INFORMATION
  Report Type: 
  Country: None (occurrence: None)
  Receive Date: 20100709
  Receipt Date: 20070301
  Transmission Date: 20110219
  Serious: No
  Sender: FDA-Public Use
  Company Number: US-PFIZER INC-2007007218

PATIENT
  Sex: Male
  Weight: 113.4 kg

DRUGS (10)
  1. CHANTIX [Suspect]
     Indication: SMOKING CESSATION THERAPY
     Dosage: DAILY
     Dates: start: 20070125
  2. LORTAB [Suspect]
     Indication: PAIN
     Dates: start: 20070101
  3. TRAZODONE [Concomitant]
     Indication: INSOMNIA
  4. STELAZINE [Concomitant]
  5. DEPAKOTE [Concomitant]
  6. PAXIL [Concomitant]
  7. KLONOPIN [Concomitant]
  8. PRILOSEC [Concomitant]
     Indication: GASTRIC DISORDER
  9. ALL OTHER THERAPEUTIC PRODUCTS [Concomitant]
  10. ALEVE (CAPLET) [Concomitant]

REACTIONS (21)
  - ABNORMAL DREAMS [None]
  - ANXIETY [None]
  - ARTHRALGIA [None]
  - BLOOD PRESSURE INCREASED [None]
  - COUGH [None]
  - CRYING [None]
  - DRUG INEFFECTIVE [None]
  - FEELING ABNORMAL [None]
  - FEELING HOT [None]
  - FLATULENCE [None]
  - HEADACHE [None]
  - INSOMNIA [None]
  - NAUSEA [None]
  - POLLAKIURIA [None]
  - SINUS CONGESTION [None]
  - SINUSITIS [None]
  - SLEEP DISORDER [None]
  - TOBACCO USER [None]
  - TOBACCO WITHDRAWAL SYMPTOMS [None]
  - VOMITING [None]
  - WEIGHT INCREASED [None]
